FAERS Safety Report 7091602-5 (Version None)
Quarter: 2010Q4

REPORT INFORMATION
  Report Type: 
  Country: None (occurrence: None)
  Receive Date: 20101101
  Receipt Date: 20101021
  Transmission Date: 20110411
  Serious: Yes (Other)
  Sender: FDA-Public Use
  Company Number: 1000016954

PATIENT
  Age: 48 Year
  Sex: Female

DRUGS (16)
  1. SAVELLA [Suspect]
     Indication: FIBROMYALGIA
     Dosage: SEE IMAGE
     Route: 048
     Dates: start: 20100901, end: 20100901
  2. SAVELLA [Suspect]
     Indication: NEURALGIA
     Dosage: SEE IMAGE
     Route: 048
     Dates: start: 20100901, end: 20100901
  3. SAVELLA [Suspect]
     Indication: FIBROMYALGIA
     Dosage: SEE IMAGE
     Route: 048
     Dates: start: 20100901, end: 20100901
  4. SAVELLA [Suspect]
     Indication: NEURALGIA
     Dosage: SEE IMAGE
     Route: 048
     Dates: start: 20100901, end: 20100901
  5. SAVELLA [Suspect]
     Indication: FIBROMYALGIA
     Dosage: SEE IMAGE
     Route: 048
     Dates: start: 20100901
  6. SAVELLA [Suspect]
     Indication: NEURALGIA
     Dosage: SEE IMAGE
     Route: 048
     Dates: start: 20100901
  7. SAVELLA [Suspect]
     Indication: FIBROMYALGIA
     Dosage: 100 MG (50 MG,2 IN 1 D),ORAL
     Route: 048
     Dates: start: 20100901, end: 20101022
  8. SAVELLA [Suspect]
     Indication: NEURALGIA
     Dosage: 100 MG (50 MG,2 IN 1 D),ORAL
     Route: 048
     Dates: start: 20100901, end: 20101022
  9. SAVELLA [Suspect]
     Indication: FIBROMYALGIA
     Dosage: 50 MG (50 MG,1 IN 1 D),ORAL ; 25 MG (25 MG,1 IN 1 D),ORAL
     Route: 048
     Dates: start: 20101023, end: 20101024
  10. SAVELLA [Suspect]
     Indication: NEURALGIA
     Dosage: 50 MG (50 MG,1 IN 1 D),ORAL ; 25 MG (25 MG,1 IN 1 D),ORAL
     Route: 048
     Dates: start: 20101023, end: 20101024
  11. SAVELLA [Suspect]
     Indication: FIBROMYALGIA
     Dosage: 50 MG (50 MG,1 IN 1 D),ORAL ; 25 MG (25 MG,1 IN 1 D),ORAL
     Route: 048
     Dates: start: 20101025
  12. SAVELLA [Suspect]
     Indication: NEURALGIA
     Dosage: 50 MG (50 MG,1 IN 1 D),ORAL ; 25 MG (25 MG,1 IN 1 D),ORAL
     Route: 048
     Dates: start: 20101025
  13. SEROQUEL (QUETIAPINE) (TABLETS) (QUETIAPINE) [Concomitant]
  14. CLONAZEPAM (CLONZEPAM) (CLONAZEPAM) [Concomitant]
  15. LISINOPRIL/HCTZ (PRINZIDE) (PRINZIDE) [Concomitant]
  16. PEPCID (FAMOTIDINE) (FAMOTIDINE) [Concomitant]

REACTIONS (12)
  - AGITATION [None]
  - ANXIETY [None]
  - CONFUSIONAL STATE [None]
  - CRYING [None]
  - DISTURBANCE IN ATTENTION [None]
  - HEADACHE [None]
  - HOMICIDAL IDEATION [None]
  - INSOMNIA [None]
  - MOOD SWINGS [None]
  - NAUSEA [None]
  - PARAESTHESIA [None]
  - WEIGHT DECREASED [None]
